FAERS Safety Report 4427130-2 (Version None)
Quarter: 2004Q3

REPORT INFORMATION
  Report Type: 
  Country: None (occurrence: None)
  Receive Date: 20040726
  Receipt Date: 20040525
  Transmission Date: 20050211
  Serious: No
  Sender: FDA-Public Use
  Company Number: USA040465837

PATIENT
  Age: 70 Year
  Sex: Female
  Weight: 56 kg

DRUGS (15)
  1. FORTEO [Suspect]
     Indication: OSTEOPOROSIS
     Dosage: 20 UG/DAY
     Dates: start: 20040423
  2. FOSAMAX [Concomitant]
  3. PREMARIN [Concomitant]
  4. PREDNISONE [Concomitant]
  5. ALBUTEROL [Concomitant]
  6. ATROVENT [Concomitant]
  7. ADVAIR DISKUS 100/50 [Concomitant]
  8. CALCIUM [Concomitant]
  9. ACIPHEX [Concomitant]
  10. MULTIVITAMIN [Concomitant]
  11. HYDROCHLOROTHIAZIDE [Concomitant]
  12. DETROL LA (TOLTERODINE L-TARTRATE) [Concomitant]
  13. MAGNESIUM [Concomitant]
  14. PROVENTIL [Concomitant]
  15. POTASSIUM [Concomitant]

REACTIONS (5)
  - BACK PAIN [None]
  - HEADACHE [None]
  - HEART RATE INCREASED [None]
  - NECK PAIN [None]
  - TACHYPNOEA [None]
